FAERS Safety Report 23429740 (Version 3)
Quarter: 2024Q2

REPORT INFORMATION
  Report Type: Spontaneous
  Country: US (occurrence: US)
  Receive Date: 20240122
  Receipt Date: 20240523
  Transmission Date: 20240716
  Serious: Yes (Other)
  Sender: FDA-Public Use
  Company Number: US-ELI_LILLY_AND_COMPANY-US202401010265

PATIENT
  Age: 45 Year
  Sex: Female

DRUGS (1)
  1. VERZENIO [Suspect]
     Active Substance: ABEMACICLIB
     Indication: Breast cancer female
     Dosage: 100 MG, BID, WITH OR WITHOUT FOOD
     Route: 048
     Dates: start: 20230118

REACTIONS (6)
  - Malignant neoplasm progression [Not Recovered/Not Resolved]
  - Onychoclasis [Unknown]
  - Pain of skin [Not Recovered/Not Resolved]
  - Madarosis [Not Recovered/Not Resolved]
  - Constipation [Unknown]
  - Alopecia [Not Recovered/Not Resolved]
